FAERS Safety Report 6259685-X (Version None)
Quarter: 2009Q3

REPORT INFORMATION
  Report Type: 
  Country: None (occurrence: None)
  Receive Date: 20090706
  Receipt Date: 20090706
  Transmission Date: 20100115
  Serious: Yes (Life-Threatening)
  Sender: FDA-Public Use
  Company Number: None

PATIENT
  Age: 48 Year
  Sex: Female
  Weight: 65.7716 kg

DRUGS (1)
  1. ZOLPIDEM TARTRATE 10 MG. TEVA, JERUSALEM, ISRAEL [Suspect]
     Indication: INSOMNIA
     Dosage: 5 MG. 1X/DAY PO
     Route: 048
     Dates: start: 20090701, end: 20090704

REACTIONS (9)
  - ABNORMAL BEHAVIOUR [None]
  - FEELING ABNORMAL [None]
  - LYMPHADENOPATHY [None]
  - MEMORY IMPAIRMENT [None]
  - MIDDLE INSOMNIA [None]
  - NAUSEA [None]
  - PRODUCT SUBSTITUTION ISSUE [None]
  - SINUSITIS [None]
  - SOMNOLENCE [None]
